FAERS Safety Report 9919649 (Version 1)
Quarter: 2014Q1

REPORT INFORMATION
  Report Type: Spontaneous
  Country: DE (occurrence: DE)
  Receive Date: 20140224
  Receipt Date: 20140224
  Transmission Date: 20141002
  Serious: Yes (Other)
  Sender: FDA-Public Use
  Company Number: DE-TEVA-463304GER

PATIENT
  Age: 63 Year
  Sex: Male
  Weight: 80 kg

DRUGS (2)
  1. CAPECITABINE [Suspect]
     Indication: RECTAL CANCER METASTATIC
     Dosage: 3000 MILLIGRAM DAILY;
     Route: 065
  2. OXALIPLATIN [Concomitant]
     Indication: RECTAL CANCER METASTATIC
     Route: 065

REACTIONS (1)
  - Arteriospasm coronary [Recovered/Resolved]
